FAERS Safety Report 5883356-2 (Version None)
Quarter: 2008Q3

REPORT INFORMATION
  Report Type: 
  Country: None (occurrence: None)
  Receive Date: 20080915
  Receipt Date: 20080908
  Transmission Date: 20090109
  Serious: Yes (Hospitalization, Other)
  Sender: FDA-Public Use
  Company Number: US-CELGENEUS-163-21880-08070400

PATIENT
  Sex: Male

DRUGS (5)
  1. REVLIMID [Suspect]
     Indication: MYELODYSPLASTIC SYNDROME
     Route: 048
     Dates: start: 20080609, end: 20080701
  2. ARANESP [Concomitant]
     Indication: ANAEMIA
     Route: 065
     Dates: start: 20060425, end: 20070101
  3. ARANESP [Concomitant]
     Indication: MYELODYSPLASTIC SYNDROME
  4. PROCRIT [Concomitant]
     Indication: ANAEMIA
     Route: 065
     Dates: start: 20070427, end: 20070901
  5. PROCRIT [Concomitant]
     Indication: MYELODYSPLASTIC SYNDROME

REACTIONS (4)
  - BLINDNESS [None]
  - OPTIC NEURITIS [None]
  - PUPILLARY DISORDER [None]
  - TEMPORAL ARTERITIS [None]
